FAERS Safety Report 25281360 (Version 1)
Quarter: 2025Q2

REPORT INFORMATION
  Report Type: Spontaneous
  Country: US (occurrence: US)
  Receive Date: 20250508
  Receipt Date: 20250508
  Transmission Date: 20250716
  Serious: No
  Sender: TAIHO ONCOLOGY INC
  Company Number: US-TAIHOP-2025-004829

PATIENT
  Sex: Male

DRUGS (1)
  1. INQOVI [Suspect]
     Active Substance: CEDAZURIDINE\DECITABINE
     Indication: Chronic myelomonocytic leukaemia (in remission)
     Dosage: 135MG (DECITABINE 35 MG AND CEDAZURIDINE 100 MG)?CYCLE 1, DAYS 1 AND 2
     Route: 048
     Dates: start: 20250412

REACTIONS (3)
  - Rash [Unknown]
  - Inappropriate schedule of product administration [Unknown]
  - Underdose [Unknown]
